FAERS Safety Report 6650752-5 (Version None)
Quarter: 2010Q1

REPORT INFORMATION
  Report Type: 
  Country: None (occurrence: None)
  Receive Date: 20100325
  Receipt Date: 20100310
  Transmission Date: 20100710
  Serious: No
  Sender: FDA-Public Use
  Company Number: US-BIOGENIDEC-2010BI000792

PATIENT
  Age: 44 Year
  Sex: Male

DRUGS (1)
  1. TYSABRI [Suspect]
     Indication: MULTIPLE SCLEROSIS
     Route: 042
     Dates: start: 20090723

REACTIONS (7)
  - BACK PAIN [None]
  - CHEST PAIN [None]
  - FATIGUE [None]
  - HEADACHE [None]
  - INSOMNIA [None]
  - NECK PAIN [None]
  - PAIN [None]
